FAERS Safety Report 13433937 (Version 2)
Quarter: 2017Q2

REPORT INFORMATION
  Report Type: Spontaneous
  Country: US (occurrence: US)
  Receive Date: 20170412
  Receipt Date: 20170501
  Transmission Date: 20170830
  Serious: Yes (Other)
  Sender: FDA-Public Use
  Company Number: US-JNJFOC-20170411051

PATIENT
  Sex: Male
  Weight: 132 kg

DRUGS (1)
  1. RISPERDAL CONSTA [Suspect]
     Active Substance: RISPERIDONE
     Indication: SCHIZOPHRENIA
     Route: 030
     Dates: start: 2013, end: 20170321

REACTIONS (4)
  - Device malfunction [Unknown]
  - Underdose [Unknown]
  - Off label use [Unknown]
  - Incorrect dose administered [Unknown]
